FAERS Safety Report 4824649-7 (Version None)
Quarter: 2005Q4

REPORT INFORMATION
  Report Type: 
  Country: None (occurrence: None)
  Receive Date: 20051012
  Receipt Date: 20050726
  Transmission Date: 20060501
  Serious: No
  Sender: FDA-Public Use
  Company Number: 2005S1000164

PATIENT
  Age: 87 Year
  Weight: 79 kg

DRUGS (17)
  1. CUBICIN [Suspect]
     Indication: POSTOPERATIVE WOUND INFECTION
     Dosage: 300 MG;Q24H;IV
     Route: 042
     Dates: start: 20050720
  2. FUROSEMIDE [Concomitant]
  3. CITALOPRAM [Concomitant]
  4. RAMIPRIL [Concomitant]
  5. DIGOXIN [Concomitant]
  6. PAROXETINE HCL [Concomitant]
  7. WARFARIN [Concomitant]
  8. OMEPRAZOLE [Concomitant]
  9. PHENYTOIN [Concomitant]
  10. FUROSEMIDE [Concomitant]
  11. FLUCONAZOLE [Concomitant]
  12. MULTI-VITAMIN [Concomitant]
  13. PANTOPRAZOLE [Concomitant]
  14. ASCORBIC ACID [Concomitant]
  15. HALOPERIDOL [Concomitant]
  16. CIPROFLOXACIN [Concomitant]
  17. VANCOMYCIN [Concomitant]

REACTIONS (3)
  - AMMONIA INCREASED [None]
  - ASPARTATE AMINOTRANSFERASE INCREASED [None]
  - METABOLIC ENCEPHALOPATHY [None]
